FAERS Safety Report 10093095 (Version 1)
Quarter: 2014Q2

REPORT INFORMATION
  Report Type: Spontaneous
  Country: US (occurrence: US)
  Receive Date: 20140421
  Receipt Date: 20140421
  Transmission Date: 20141212
  Serious: No
  Sender: FDA-Public Use
  Company Number: US-SANOFI-AVENTIS-2013SA093011

PATIENT
  Sex: Female

DRUGS (3)
  1. ALLEGRA [Suspect]
     Route: 065
  2. FEXOFENADINE HYDROCHLORIDE [Suspect]
     Route: 065
  3. FLONASE [Suspect]
     Route: 065

REACTIONS (6)
  - Abnormal behaviour [Unknown]
  - Unevaluable event [Unknown]
  - Abdominal discomfort [Unknown]
  - Nasopharyngitis [Unknown]
  - Somnolence [Unknown]
  - Drug ineffective [Unknown]
